FAERS Safety Report 19829011 (Version 1)
Quarter: 2021Q3

REPORT INFORMATION
  Report Type: Spontaneous
  Country: AT (occurrence: AT)
  Receive Date: 20210914
  Receipt Date: 20210914
  Transmission Date: 20211014
  Serious: Yes (Other)
  Sender: FDA-Public Use
  Company Number: AT-TAKEDA-2020TUS054399

PATIENT
  Sex: Male

DRUGS (12)
  1. REVESTIVE [Suspect]
     Active Substance: TEDUGLUTIDE
     Indication: IMMUNODEFICIENCY COMMON VARIABLE
     Dosage: 0.05 MILLIGRAM/KILOGRAM
     Route: 065
     Dates: start: 202012
  2. REVESTIVE [Suspect]
     Active Substance: TEDUGLUTIDE
     Indication: SHORT-BOWEL SYNDROME
  3. REVESTIVE [Suspect]
     Active Substance: TEDUGLUTIDE
     Indication: IMMUNODEFICIENCY COMMON VARIABLE
     Dosage: 0.05 MILLIGRAM/KILOGRAM
     Route: 065
     Dates: start: 202012
  4. REVESTIVE [Suspect]
     Active Substance: TEDUGLUTIDE
     Indication: NOROVIRUS INFECTION
  5. REVESTIVE [Suspect]
     Active Substance: TEDUGLUTIDE
     Indication: SHORT-BOWEL SYNDROME
  6. REVESTIVE [Suspect]
     Active Substance: TEDUGLUTIDE
     Indication: IMMUNODEFICIENCY COMMON VARIABLE
     Dosage: 0.05 MILLIGRAM/KILOGRAM
     Route: 065
     Dates: start: 202012
  7. REVESTIVE [Suspect]
     Active Substance: TEDUGLUTIDE
     Indication: NOROVIRUS INFECTION
  8. REVESTIVE [Suspect]
     Active Substance: TEDUGLUTIDE
     Indication: IMMUNODEFICIENCY COMMON VARIABLE
     Dosage: 0.05 MILLIGRAM/KILOGRAM
     Route: 065
     Dates: start: 202012
  9. REVESTIVE [Suspect]
     Active Substance: TEDUGLUTIDE
     Indication: SHORT-BOWEL SYNDROME
  10. REVESTIVE [Suspect]
     Active Substance: TEDUGLUTIDE
     Indication: NOROVIRUS INFECTION
  11. REVESTIVE [Suspect]
     Active Substance: TEDUGLUTIDE
     Indication: NOROVIRUS INFECTION
  12. REVESTIVE [Suspect]
     Active Substance: TEDUGLUTIDE
     Indication: SHORT-BOWEL SYNDROME

REACTIONS (2)
  - Off label use [Unknown]
  - Carcinoma in situ [Unknown]
